FAERS Safety Report 17425489 (Version 1)
Quarter: 2020Q1

REPORT INFORMATION
  Report Type: Spontaneous
  Country: DE (occurrence: DE)
  Receive Date: 20200218
  Receipt Date: 20200218
  Transmission Date: 20200409
  Serious: Yes (Other)
  Sender: FDA-Public Use
  Company Number: DE-AUROBINDO-AUR-APL-2020-007682

PATIENT
  Sex: Female

DRUGS (4)
  1. ULTRACAIN [Suspect]
     Active Substance: ARTICAINE HYDROCHLORIDE
     Indication: DENTAL OPERATION
     Dosage: UNK
     Route: 065
  2. XYLONOR [Suspect]
     Active Substance: CETRIMIDE\LIDOCAINE
     Indication: DENTAL OPERATION
     Dosage: UNK
     Route: 065
  3. LIDOCAINE. [Suspect]
     Active Substance: LIDOCAINE
     Indication: DENTAL OPERATION
     Dosage: UNK
     Route: 065
  4. XYLONEST [Suspect]
     Active Substance: PRILOCAINE HYDROCHLORIDE
     Indication: DENTAL OPERATION
     Dosage: UNK
     Route: 065

REACTIONS (3)
  - Syncope [Unknown]
  - Drug ineffective [Unknown]
  - Alopecia [Unknown]
